FAERS Safety Report 7299219-4 (Version None)
Quarter: 2011Q1

REPORT INFORMATION
  Report Type: 
  Country: None (occurrence: None)
  Receive Date: 20110217
  Receipt Date: 20110207
  Transmission Date: 20110831
  Serious: Yes (Hospitalization, Other)
  Sender: FDA-Public Use
  Company Number: PHHY2011JP10508

PATIENT
  Age: 54 Year
  Sex: Male

DRUGS (2)
  1. LEVOFLOXACIN [Suspect]
     Indication: RESPIRATORY TRACT INFECTION
     Dosage: UNK
     Route: 048
  2. CEFEPIME [Suspect]
     Indication: RESPIRATORY TRACT INFECTION
     Dosage: UNK
     Route: 041

REACTIONS (13)
  - EOSINOPHILIC PNEUMONIA ACUTE [None]
  - RALES [None]
  - BODY TEMPERATURE INCREASED [None]
  - WHITE BLOOD CELL COUNT INCREASED [None]
  - RESPIRATORY RATE INCREASED [None]
  - WHEEZING [None]
  - BLOOD LACTATE DEHYDROGENASE INCREASED [None]
  - HEART RATE INCREASED [None]
  - PO2 DECREASED [None]
  - DYSPNOEA [None]
  - OXYGEN SATURATION DECREASED [None]
  - PLEURAL EFFUSION [None]
  - BLOOD PRESSURE DECREASED [None]
